FAERS Safety Report 11192888 (Version 1)
Quarter: 2015Q2

REPORT INFORMATION
  Report Type: Spontaneous
  Country: US (occurrence: None)
  Receive Date: 20150612
  Receipt Date: 20150612
  Transmission Date: 20150821
  Serious: Yes (Other)
  Sender: FDA-Public Use
  Company Number: KAD201506-001625

PATIENT
  Sex: Female

DRUGS (2)
  1. INTERFERON (INTERFERON) [Suspect]
     Active Substance: INTERFERON
     Indication: HEPATITIS C
  2. RIBAVIRIN. [Suspect]
     Active Substance: RIBAVIRIN
     Indication: HEPATITIS C
     Route: 048

REACTIONS (4)
  - Hepatic cirrhosis [None]
  - Bipolar disorder [None]
  - Malaise [None]
  - Impaired work ability [None]
